FAERS Safety Report 6798014-X (Version None)
Quarter: 2010Q2

REPORT INFORMATION
  Report Type: 
  Country: None (occurrence: None)
  Receive Date: 20100523
  Receipt Date: 20100614
  Transmission Date: 20101027
  Serious: Yes (Hospitalization)
  Sender: FDA-Public Use
  Company Number: UTC-001169

PATIENT
  Age: 30 Year
  Sex: Female
  Weight: 77 kg

DRUGS (13)
  1. REMODULIN [Suspect]
     Dosage: 149.76 UG/KG (0.104 UG/KG, 1 IN 1 MIN), SUBCUTANEOUS
     Route: 058
  2. FUROSEMIDE [Concomitant]
  3. REVATIO [Concomitant]
  4. KLONOPIN [Concomitant]
  5. PEPCID [Concomitant]
  6. PAXIL [Concomitant]
  7. TEGRETOL [Concomitant]
  8. PROVENTIL [Concomitant]
  9. TRACELEER (BOSENTAN) [Concomitant]
  10. POTASSIUM CHLORIDE [Concomitant]
  11. OXYCODONE HCL [Concomitant]
  12. LOPERAMIDE (LOPERAMIDE) [Concomitant]
  13. FEXOFENADINE HCL [Concomitant]

REACTIONS (1)
  - INFECTION [None]
